FAERS Safety Report 12698593 (Version 1)
Quarter: 2016Q3

REPORT INFORMATION
  Report Type: Spontaneous
  Country: US (occurrence: US)
  Receive Date: 20160830
  Receipt Date: 20160830
  Transmission Date: 20161109
  Serious: No
  Sender: FDA-Public Use
  Company Number: US-BAYER-2016-168143

PATIENT
  Age: 82 Year
  Sex: Female
  Weight: 65.76 kg

DRUGS (8)
  1. KYO MEGUSURI [Concomitant]
  2. VITAMIN E [Concomitant]
     Active Substance: .ALPHA.-TOCOPHEROL
  3. VITAMIN C [Concomitant]
     Active Substance: ASCORBIC ACID
  4. NATURE^S WAY MEN^S ENERGY MEGA MULTI-VITAMIN [Concomitant]
  5. MIRALAX [Suspect]
     Active Substance: POLYETHYLENE GLYCOL 3350
     Indication: ABDOMINAL DISCOMFORT
     Dosage: 1 DF, PRN
     Route: 048
     Dates: start: 201608, end: 201608
  6. ALOE VERA [Concomitant]
     Active Substance: ALOE VERA LEAF
  7. VITAMIN D [Concomitant]
     Active Substance: CHOLECALCIFEROL
  8. VITAMIN B12 [Concomitant]
     Active Substance: CYANOCOBALAMIN

REACTIONS (1)
  - Intercepted medication error [Unknown]

NARRATIVE: CASE EVENT DATE: 20160809
